FAERS Safety Report 16131611 (Version 6)
Quarter: 2019Q4

REPORT INFORMATION
  Report Type: Report from Study
  Country: US (occurrence: US)
  Receive Date: 20190329
  Receipt Date: 20191212
  Transmission Date: 20200122
  Serious: Yes (Other)
  Sender: FDA-Public Use
  Company Number: PHEH2019US013484

PATIENT
  Sex: Female

DRUGS (1)
  1. GILENYA [Suspect]
     Active Substance: FINGOLIMOD HYDROCHLORIDE
     Indication: MULTIPLE SCLEROSIS
     Dosage: 0.5 MG, QD
     Route: 048
     Dates: start: 20181231

REACTIONS (15)
  - Gastrointestinal disorder [Unknown]
  - Nasopharyngitis [Unknown]
  - Nausea [Unknown]
  - Pain [Unknown]
  - Fatigue [Not Recovered/Not Resolved]
  - Diverticulitis [Unknown]
  - Renal cyst [Unknown]
  - Hypersensitivity [Unknown]
  - Fall [Unknown]
  - Dizziness [Unknown]
  - Faecaloma [Unknown]
  - Hepatic cyst [Unknown]
  - Constipation [Unknown]
  - Pharyngitis [Unknown]
  - Headache [Recovering/Resolving]
